FAERS Safety Report 25845167 (Version 1)
Quarter: 2025Q3

REPORT INFORMATION
  Report Type: Spontaneous
  Country: EU (occurrence: EU)
  Receive Date: 20250925
  Receipt Date: 20250925
  Transmission Date: 20251021
  Serious: Yes (Life-Threatening)
  Sender: NOVARTIS
  Company Number: EU-002147023-NVSC2025DE147365

PATIENT
  Sex: Female

DRUGS (1)
  1. KESIMPTA [Suspect]
     Active Substance: OFATUMUMAB
     Indication: Multiple sclerosis
     Dosage: 20 MG, QMO
     Route: 065
     Dates: start: 2023

REACTIONS (4)
  - Head discomfort [Unknown]
  - Dizziness [Unknown]
  - Herpes zoster [Unknown]
  - Stress [Unknown]

NARRATIVE: CASE EVENT DATE: 20250101
